FAERS Safety Report 8997752 (Version 1)
Quarter: 2013Q1

REPORT INFORMATION
  Report Type: Spontaneous
  Country: IT (occurrence: IT)
  Receive Date: 20130104
  Receipt Date: 20130104
  Transmission Date: 20140127
  Serious: Yes (Hospitalization, Other)
  Sender: FDA-Public Use
  Company Number: PHHY2012IT121459

PATIENT
  Sex: Female

DRUGS (9)
  1. FUROSEMIDE [Suspect]
     Dosage: 1 DF, UNK
     Route: 048
     Dates: start: 20111028, end: 20121027
  2. BISOPROLOL [Suspect]
     Dosage: 1 DF, UNK
     Route: 048
     Dates: start: 20111028, end: 20121027
  3. DILTIAZEM [Suspect]
     Dosage: 1 DF, UNK
     Route: 048
     Dates: start: 20111028, end: 20121027
  4. GLYCERYL TRINITRATE [Suspect]
     Dosage: 1 DF, UNK
     Route: 062
     Dates: start: 20111028, end: 20121027
  5. EUTIROX [Concomitant]
  6. POTASSIUM CHLORIDE [Concomitant]
  7. SIMVASTATIN [Concomitant]
  8. ACETYLSALICYLIC ACID [Concomitant]
  9. CALCITRIOL [Concomitant]

REACTIONS (2)
  - Syncope [Not Recovered/Not Resolved]
  - Blood pressure decreased [Not Recovered/Not Resolved]
